FAERS Safety Report 9420495 (Version 1)
Quarter: 2013Q3

REPORT INFORMATION
  Report Type: Spontaneous
  Country: US (occurrence: US)
  Receive Date: 20130725
  Receipt Date: 20130725
  Transmission Date: 20140515
  Serious: No
  Sender: FDA-Public Use
  Company Number: US-ABBOTT-13P-163-1038497-00

PATIENT
  Age: 71 Year
  Sex: Female
  Weight: 51.3 kg

DRUGS (2)
  1. SYNTHROID [Suspect]
     Indication: HYPOTHYROIDISM
     Dates: start: 2011
  2. SYNTHROID [Suspect]
     Dosage: 1 PILL 4 DAYS A WEEK AND 1.5 PILLS 3 DAYS A WEEK
     Dates: start: 20121016, end: 20130219

REACTIONS (9)
  - Pain in extremity [Not Recovered/Not Resolved]
  - Pain in extremity [Not Recovered/Not Resolved]
  - Neck pain [Not Recovered/Not Resolved]
  - Arthralgia [Not Recovered/Not Resolved]
  - Neck pain [Recovering/Resolving]
  - Muscle disorder [Recovering/Resolving]
  - Nerve compression [Recovering/Resolving]
  - Nerve compression [Recovering/Resolving]
  - Nerve compression [Recovering/Resolving]
